FAERS Safety Report 18687354 (Version 2)
Quarter: 2021Q1

REPORT INFORMATION
  Report Type: Spontaneous
  Country: GB (occurrence: GB)
  Receive Date: 20201231
  Receipt Date: 20210218
  Transmission Date: 20210419
  Serious: Yes (Other)
  Sender: FDA-Public Use
  Company Number: NVSC2020GB343073

PATIENT
  Sex: Female

DRUGS (1)
  1. HYRIMOZ [Suspect]
     Active Substance: ADALIMUMAB-ADAZ
     Indication: PRODUCT USED FOR UNKNOWN INDICATION
     Dosage: 40 MG, Q2W (EVERY FORTNIGHT)
     Route: 065

REACTIONS (12)
  - Diverticulitis [Unknown]
  - Cholelithiasis [Unknown]
  - Hypotension [Unknown]
  - Malaise [Unknown]
  - Peripheral swelling [Unknown]
  - Joint swelling [Unknown]
  - Intentional dose omission [Unknown]
  - Heart rate increased [Unknown]
  - Pain in extremity [Unknown]
  - Discomfort [Unknown]
  - Hypertension [Unknown]
  - Chest pain [Unknown]
